FAERS Safety Report 16233122 (Version 1)
Quarter: 2019Q2

REPORT INFORMATION
  Report Type: Spontaneous
  Country: US (occurrence: US)
  Receive Date: 20190424
  Receipt Date: 20190424
  Transmission Date: 20190711
  Serious: No
  Sender: FDA-Public Use
  Company Number: US-PFIZER INC-2019171835

PATIENT
  Age: 25 Year
  Sex: Male

DRUGS (1)
  1. EUCRISA [Suspect]
     Active Substance: CRISABOROLE
     Dosage: UNK, AS NEEDED [APPLY TO AFFECTED AREAS TWICE A DAY AS NEEDED]
     Dates: start: 201903

REACTIONS (1)
  - Drug ineffective [Unknown]
